FAERS Safety Report 12390237 (Version 1)
Quarter: 2016Q2

REPORT INFORMATION
  Report Type: Spontaneous
  Country: US (occurrence: US)
  Receive Date: 20160520
  Receipt Date: 20160520
  Transmission Date: 20160815
  Serious: No
  Sender: FDA-Public Use
  Company Number: ADR-2015-01417

PATIENT
  Age: 29 Year
  Sex: Male

DRUGS (1)
  1. BACLOFEN. [Suspect]
     Active Substance: BACLOFEN
     Route: 037

REACTIONS (5)
  - Incorrect drug administration rate [Unknown]
  - Dysuria [Unknown]
  - Overdose [Unknown]
  - Lethargy [Unknown]
  - Muscular weakness [Unknown]
